FAERS Safety Report 7097912-X (Version None)
Quarter: 2010Q4

REPORT INFORMATION
  Report Type: 
  Country: None (occurrence: None)
  Receive Date: 20101104
  Receipt Date: 20101021
  Transmission Date: 20110411
  Serious: Yes (Hospitalization)
  Sender: FDA-Public Use
  Company Number: DSA_44168_2010

PATIENT
  Age: 86 Year
  Sex: Female

DRUGS (6)
  1. ENALAPRIL MALEATE [Suspect]
     Indication: PRODUCT USED FOR UNKNOWN INDICATION
     Dosage: 1 TAB DAILY, ORAL
     Route: 048
     Dates: end: 20100809
  2. CALCIUM-SANDOZ F (CALCIUM SANDOZ F - CALCIUM CARBNT/CA GLUCONATE/ CA L [Suspect]
     Indication: PRODUCT USED FOR UNKNOWN INDICATION
     Dosage: 9G DAILY, ORAL
     Route: 048
     Dates: end: 20100809
  3. CHOLECALCIFEROL (VI-DE-3-HYDROSOL CHOLECALCIFEROL) [Suspect]
     Indication: PRODUCT USED FOR UNKNOWN INDICATION
     Dosage: 1000 IU DAILY, ORAL
     Route: 048
     Dates: end: 20100809
  4. EUTHYROX [Concomitant]
  5. NORVASC [Concomitant]
  6. PARIET [Concomitant]

REACTIONS (7)
  - ANAEMIA [None]
  - DEHYDRATION [None]
  - HYPERCALCAEMIA [None]
  - POLYDIPSIA [None]
  - POLYURIA [None]
  - RENAL FAILURE [None]
  - SYNCOPE [None]
